FAERS Safety Report 9985372 (Version 1)
Quarter: 2014Q1

REPORT INFORMATION
  Report Type: Spontaneous
  Country: JP (occurrence: JP)
  Receive Date: 20140307
  Receipt Date: 20140307
  Transmission Date: 20141002
  Serious: Yes (Hospitalization)
  Sender: FDA-Public Use
  Company Number: JP-BAXTER-2014BAX010360

PATIENT
  Age: 2 Year
  Sex: Male
  Weight: 10 kg

DRUGS (1)
  1. ADVATE 1000 [Suspect]
     Indication: HAEMOSTASIS
     Route: 042
     Dates: start: 201209

REACTIONS (1)
  - Urinary tract infection [Not Recovered/Not Resolved]
